FAERS Safety Report 14764780 (Version 6)
Quarter: 2019Q1

REPORT INFORMATION
  Report Type: Spontaneous
  Country: US (occurrence: US)
  Receive Date: 20180416
  Receipt Date: 20190319
  Transmission Date: 20190417
  Serious: No
  Sender: FDA-Public Use
  Company Number: US-PFIZER INC-2018152714

PATIENT
  Age: 59 Year
  Sex: Female

DRUGS (1)
  1. FLECTOR [Suspect]
     Active Substance: DICLOFENAC EPOLAMINE
     Dosage: 4 DF, DAILY
     Route: 062

REACTIONS (6)
  - Sciatica [Not Recovered/Not Resolved]
  - Product dispensing error [Unknown]
  - Product use issue [Unknown]
  - Sensitivity to weather change [Unknown]
  - Arthralgia [Unknown]
  - Pain [Unknown]

NARRATIVE: CASE EVENT DATE: 20190125
